FAERS Safety Report 5117940-0 (Version None)
Quarter: 2006Q3

REPORT INFORMATION
  Report Type: 
  Country: None (occurrence: None)
  Receive Date: 20060926
  Receipt Date: 20060913
  Transmission Date: 20061208
  Serious: Yes (Hospitalization)
  Sender: FDA-Public Use
  Company Number: 2006107304

PATIENT
  Age: 83 Year
  Sex: Female
  Weight: 39 kg

DRUGS (8)
  1. DETRUSITOL SR (TOLTERODINE) [Suspect]
     Indication: HYPERTONIC BLADDER
     Dosage: 4 MG (4 MG, 1 IN 1 D), ORAL
     Route: 048
     Dates: start: 20060808, end: 20060101
  2. ENALAPRIL MALEATE [Concomitant]
  3. NORVASC [Concomitant]
  4. OMEPRAZOLE [Concomitant]
  5. OPALMON (LIMAPROST) [Concomitant]
  6. SHAKUYAKU-KANZO-TO  (LIQUORICE, PEONY) [Concomitant]
  7. ZOLPIDEM TARTRATE [Concomitant]
  8. DIAZEPAM [Concomitant]

REACTIONS (4)
  - DECREASED APPETITE [None]
  - GAIT DISTURBANCE [None]
  - PYREXIA [None]
  - URINARY RETENTION [None]
